FAERS Safety Report 18415784 (Version 1)
Quarter: 2020Q4

REPORT INFORMATION
  Report Type: Spontaneous
  Country: US (occurrence: US)
  Receive Date: 20201022
  Receipt Date: 20201022
  Transmission Date: 20210114
  Serious: Yes (Hospitalization)
  Sender: FDA-Public Use
  Company Number: None

PATIENT
  Age: 48 Year
  Sex: Female
  Weight: 99 kg

DRUGS (8)
  1. AMLODIPINE [Concomitant]
     Active Substance: AMLODIPINE BESYLATE
  2. METOPROLOL. [Concomitant]
     Active Substance: METOPROLOL
  3. BCP [Concomitant]
     Active Substance: BENZALKONIUM CHLORIDE
  4. MULTIVITAMIN [Concomitant]
     Active Substance: VITAMINS
  5. REPATHA [Suspect]
     Active Substance: EVOLOCUMAB
     Indication: BLOOD CHOLESTEROL INCREASED
     Dosage: ?          QUANTITY:1 INJECTION(S);OTHER FREQUENCY:EVERY TWO WEEKS;?
     Route: 030
     Dates: start: 20200923, end: 20201007
  6. VITAMIN D [Concomitant]
     Active Substance: VITAMIN D NOS
  7. CLONIDINE. [Concomitant]
     Active Substance: CLONIDINE
  8. OSTEOBIOFLEX [Concomitant]

REACTIONS (13)
  - Cardiac disorder [None]
  - Heart rate decreased [None]
  - Feeling abnormal [None]
  - Back pain [None]
  - Fatigue [None]
  - Oesophagitis [None]
  - Muscle spasms [None]
  - Chest discomfort [None]
  - Muscle contractions involuntary [None]
  - Gastrooesophageal reflux disease [None]
  - Limb discomfort [None]
  - Musculoskeletal stiffness [None]
  - Lipids decreased [None]

NARRATIVE: CASE EVENT DATE: 20201011
